FAERS Safety Report 8996036 (Version 1)
Quarter: 2013Q1

REPORT INFORMATION
  Report Type: Spontaneous
  Country: US (occurrence: US)
  Receive Date: 20130103
  Receipt Date: 20130103
  Transmission Date: 20140127
  Serious: No
  Sender: FDA-Public Use
  Company Number: US-ABBOTT-12P-163-0932924-00

PATIENT
  Age: 2 Year
  Sex: Female
  Weight: 13.62 kg

DRUGS (1)
  1. SYNTHROID [Suspect]
     Indication: PRODUCT USED FOR UNKNOWN INDICATION
     Dosage: TOOK APPROX 70 PILLS

REACTIONS (8)
  - Wrong drug administered [Recovering/Resolving]
  - Irritability [Recovering/Resolving]
  - Crying [Recovering/Resolving]
  - Psychomotor hyperactivity [Unknown]
  - Decreased activity [Unknown]
  - Overdose [Unknown]
  - Thyroxine free increased [Unknown]
  - Product packaging issue [Unknown]
